FAERS Safety Report 6600662-4 (Version None)
Quarter: 2010Q1

REPORT INFORMATION
  Report Type: 
  Country: None (occurrence: None)
  Receive Date: 20100223
  Receipt Date: 20100223
  Transmission Date: 20100710
  Serious: Yes (Hospitalization)
  Sender: FDA-Public Use
  Company Number: None

PATIENT
  Age: 14 Year
  Sex: Female
  Weight: 45.3597 kg

DRUGS (3)
  1. GEODON [Suspect]
     Indication: BIPOLAR DISORDER
     Dosage: 60 MG PO, I BELIEVE
     Route: 048
     Dates: start: 20091101, end: 20100219
  2. GEODON [Suspect]
     Indication: DEPRESSION
     Dosage: 60 MG PO, I BELIEVE
     Route: 048
     Dates: start: 20091101, end: 20100219
  3. SERTRALINE HCL [Suspect]
     Dosage: 25 MG. AND RECENTLY RAISED TO? ONCE A DAY PO
     Route: 048
     Dates: start: 20100115, end: 20100219

REACTIONS (8)
  - ANGER [None]
  - ANXIETY [None]
  - COMPULSIONS [None]
  - DIZZINESS [None]
  - FALL [None]
  - MOOD SWINGS [None]
  - NIGHTMARE [None]
  - SUICIDAL IDEATION [None]
